FAERS Safety Report 7354451-6 (Version None)
Quarter: 2011Q1

REPORT INFORMATION
  Report Type: 
  Country: None (occurrence: None)
  Receive Date: 20110316
  Receipt Date: 20110311
  Transmission Date: 20110831
  Serious: Yes (Other)
  Sender: FDA-Public Use
  Company Number: US-BAYER-200820960NA

PATIENT
  Sex: Female

DRUGS (5)
  1. BETASERON [Suspect]
     Indication: RELAPSING-REMITTING MULTIPLE SCLEROSIS
     Dosage: 8 MIU, QOD
     Route: 058
     Dates: start: 20021023, end: 20100201
  2. LYRICA [Concomitant]
  3. MUSCLE RELAXANTS [Concomitant]
  4. ANALGESICS [Concomitant]
  5. BETASERON [Suspect]
     Indication: SECONDARY PROGRESSIVE MULTIPLE SCLEROSIS
     Dosage: 2 MIU QOD
     Route: 058
     Dates: start: 20110309

REACTIONS (23)
  - FEELING COLD [None]
  - VERTIGO [None]
  - AMNESIA [None]
  - SINUSITIS [None]
  - CONTUSION [None]
  - TREMOR [None]
  - MULTIPLE SCLEROSIS RELAPSE [None]
  - LIGAMENT RUPTURE [None]
  - MOBILITY DECREASED [None]
  - GINGIVAL ULCERATION [None]
  - ABASIA [None]
  - ERYTHEMA [None]
  - GAIT DISTURBANCE [None]
  - CYST [None]
  - JOINT EFFUSION [None]
  - DIZZINESS [None]
  - JOINT SWELLING [None]
  - SENSATION OF HEAVINESS [None]
  - PURULENT DISCHARGE [None]
  - ANKLE FRACTURE [None]
  - INJECTION SITE ERYTHEMA [None]
  - BLOOD PRESSURE INCREASED [None]
  - FATIGUE [None]
